FAERS Safety Report 4517731-5 (Version None)
Quarter: 2004Q4

REPORT INFORMATION
  Report Type: 
  Country: None (occurrence: None)
  Receive Date: 20041130
  Receipt Date: 20041115
  Transmission Date: 20050328
  Serious: Yes (Hospitalization, Other)
  Sender: FDA-Public Use
  Company Number: 2004-0007509

PATIENT
  Age: 46 Year
  Sex: Male
  Weight: 63.05 kg

DRUGS (5)
  1. TENOFOVIR DISOPROXIL FUMARATE (TENOFOVIR DISOPROXIL FUMARATE) [Suspect]
     Indication: HIV INFECTION
     Dates: start: 20031020
  2. LAMIVUDINE (LAMIVUDINE) [Concomitant]
  3. LOPINAVIR/RITONAVIRI (KALETRA) [Concomitant]
  4. ALBUTEROL [Concomitant]
  5. ADVAIR (SERETIDE MITE) [Concomitant]

REACTIONS (4)
  - BLOOD PHOSPHORUS DECREASED [None]
  - FALL [None]
  - FEMUR FRACTURE [None]
  - HIP FRACTURE [None]
